FAERS Safety Report 7405642-7 (Version None)
Quarter: 2011Q2

REPORT INFORMATION
  Report Type: 
  Country: None (occurrence: None)
  Receive Date: 20110411
  Receipt Date: 20110331
  Transmission Date: 20111010
  Serious: Yes (Other)
  Sender: FDA-Public Use
  Company Number: PHHY2011US27419

PATIENT
  Sex: Male

DRUGS (1)
  1. SANDOSTATIN LAR [Suspect]

REACTIONS (4)
  - LOSS OF CONSCIOUSNESS [None]
  - DIARRHOEA [None]
  - WEIGHT DECREASED [None]
  - ASTHENIA [None]
